FAERS Safety Report 7232309-0 (Version None)
Quarter: 2011Q1

REPORT INFORMATION
  Report Type: 
  Country: None (occurrence: None)
  Receive Date: 20110119
  Receipt Date: 20110111
  Transmission Date: 20110831
  Serious: Yes (Hospitalization)
  Sender: FDA-Public Use
  Company Number: DE-TEVA-262807GER

PATIENT
  Age: 42 Year
  Sex: Female
  Weight: 81 kg

DRUGS (14)
  1. DICLOFENAC SODIUM [Suspect]
     Indication: RHEUMATOID ARTHRITIS
     Route: 048
     Dates: start: 20100201, end: 20100430
  2. LEFLUNOMIDE [Suspect]
     Indication: RHEUMATOID ARTHRITIS
     Route: 048
     Dates: start: 20090101, end: 20100430
  3. ETANERCEPT [Suspect]
     Indication: RHEUMATOID ARTHRITIS
     Dosage: 75 MG WEEKLY (TUESDAYS 50 MG + FRIDAYS 25 MG)
     Route: 058
     Dates: start: 20090101, end: 20100429
  4. CALCIUM CARBONATE [Concomitant]
     Indication: OSTEOPOROSIS PROPHYLAXIS
     Route: 048
     Dates: start: 20090101
  5. HYZAAR [Concomitant]
     Indication: HYPERTENSION
     Dosage: 1 DF DAILY = 100 MG LOSARTAN + 25 MG HYDROCHLOROTHIAZIDE
     Route: 048
     Dates: start: 20090101
  6. TORSEMIDE [Concomitant]
     Indication: HYPERTENSION
     Route: 048
     Dates: start: 20090101
  7. PREDNISOLONE [Concomitant]
     Indication: RHEUMATOID ARTHRITIS
     Dosage: 3 MG DAILY (2 MG + 1 MG)
     Route: 048
     Dates: start: 20090101
  8. EXENATIDE [Suspect]
     Indication: TYPE 2 DIABETES MELLITUS
     Dosage: 15 ?G DAILY (10 ?G + 5 ?G)
     Route: 058
     Dates: start: 20090101, end: 20100511
  9. GLIMEPIRIDE [Suspect]
     Indication: TYPE 2 DIABETES MELLITUS
     Route: 048
     Dates: start: 20080101, end: 20100511
  10. SALBUTAMOL [Concomitant]
     Indication: ASTHMA
     Route: 055
     Dates: start: 20050101
  11. MAGNESIUM [Concomitant]
     Route: 048
     Dates: start: 20090101
  12. DICLOFENAC SODIUM [Suspect]
     Route: 048
     Dates: start: 20100511
  13. VALORON N [Concomitant]
     Indication: PAIN
     Dosage: 1 DF DAILY = 50 MG TILIDINE + 4 MG NALOXON
     Route: 048
     Dates: start: 20100401
  14. PANTOPRAZOLE SODIUM [Concomitant]
     Indication: PROPHYLAXIS AGAINST GASTROINTESTINAL ULCER
     Route: 048
     Dates: start: 20100201

REACTIONS (1)
  - OEDEMATOUS PANCREATITIS [None]
